FAERS Safety Report 9433091 (Version 4)
Quarter: 2013Q3

REPORT INFORMATION
  Report Type: Spontaneous
  Country: US (occurrence: US)
  Receive Date: 20130731
  Receipt Date: 20130909
  Transmission Date: 20140515
  Serious: Yes (Hospitalization)
  Sender: FDA-Public Use
  Company Number: US-GLAXOSMITHKLINE-A1001389A

PATIENT
  Age: 37 Year
  Sex: Male
  Weight: 213.2 kg

DRUGS (1)
  1. AVANDIA [Suspect]
     Indication: DIABETES MELLITUS
     Route: 048
     Dates: start: 20061017, end: 20070119

REACTIONS (2)
  - Myocardial infarction [Not Recovered/Not Resolved]
  - Angina pectoris [Unknown]
